FAERS Safety Report 15722998 (Version 1)
Quarter: 2018Q4

REPORT INFORMATION
  Report Type: Report from Study
  Country: JP (occurrence: JP)
  Receive Date: 20181214
  Receipt Date: 20181214
  Transmission Date: 20190205
  Serious: Yes (Other)
  Sender: FDA-Public Use
  Company Number: JP-BIOGEN-2018BI00671004

PATIENT
  Age: 1 Year
  Sex: Female
  Weight: 8.4 kg

DRUGS (18)
  1. BISOLVON [Concomitant]
     Active Substance: BROMHEXINE HYDROCHLORIDE
     Indication: RESPIRATORY TRACT INFECTION
     Route: 048
  2. SOSEGON [Concomitant]
     Active Substance: PENTAZOCINE
     Dosage: 3.75MG-4.5MG/DAY
     Route: 042
     Dates: start: 20181017, end: 20181017
  3. SPINRAZA [Suspect]
     Active Substance: NUSINERSEN
     Indication: SPINAL MUSCULAR ATROPHY
     Route: 037
     Dates: start: 20180725, end: 20180725
  4. TRICLORYL [Concomitant]
     Active Substance: TRICLOFOS SODIUM
     Route: 048
     Dates: start: 20180822, end: 20180822
  5. TRICLORYL [Concomitant]
     Active Substance: TRICLOFOS SODIUM
     Route: 048
     Dates: start: 20181017, end: 20181017
  6. SOSEGON [Concomitant]
     Active Substance: PENTAZOCINE
     Indication: ANAESTHESIA PROCEDURE
     Dosage: 3.75MG-4.5MG/DAY
     Route: 042
     Dates: start: 20180725, end: 20180725
  7. SPINRAZA [Suspect]
     Active Substance: NUSINERSEN
     Route: 037
     Dates: start: 20181017, end: 20181017
  8. ASVERIN (TIPEPIDINE HIBENZATE) [Concomitant]
     Active Substance: TIPEPIDINE HIBENZATE
     Indication: RESPIRATORY TRACT INFECTION
     Route: 048
  9. TRICLORYL [Concomitant]
     Active Substance: TRICLOFOS SODIUM
     Indication: ANAESTHESIA PROCEDURE
     Route: 048
     Dates: start: 20180725, end: 20180725
  10. ATARAX-P [Concomitant]
     Active Substance: HYDROXYZINE HYDROCHLORIDE
     Dosage: 7.5MG-10MG/DAY
     Route: 042
     Dates: start: 20181017, end: 20181017
  11. SOSEGON [Concomitant]
     Active Substance: PENTAZOCINE
     Dosage: 3.75MG-4.5MG/DAY
     Route: 042
     Dates: start: 20180822, end: 20180822
  12. SPINRAZA [Suspect]
     Active Substance: NUSINERSEN
     Route: 037
     Dates: start: 20180822, end: 20180822
  13. MUCODYNE DS [Concomitant]
     Indication: RESPIRATORY TRACT INFECTION
     Dosage: 240MG-300MG/DAY
     Route: 048
  14. MAGNESIUM OXIDE. [Concomitant]
     Active Substance: MAGNESIUM OXIDE
     Indication: CONSTIPATION
     Route: 048
  15. ATARAX-P [Concomitant]
     Active Substance: HYDROXYZINE HYDROCHLORIDE
     Indication: ANAESTHESIA PROCEDURE
     Dosage: 7.5MG-10MG/DAY
     Route: 042
     Dates: start: 20180725, end: 20180725
  16. ATARAX-P [Concomitant]
     Active Substance: HYDROXYZINE HYDROCHLORIDE
     Dosage: 7.5MG-10MG/DAY
     Route: 042
     Dates: start: 20180822, end: 20180822
  17. MEPTIN [Concomitant]
     Active Substance: PROCATEROL HYDROCHLORIDE
     Indication: RESPIRATORY TRACT INFECTION
     Dosage: 15MCG-20MCG/DAY
     Route: 048
  18. MUCOSOLVAN DS FOR PEDIATRIC [Concomitant]
     Indication: RESPIRATORY TRACT INFECTION
     Route: 048

REACTIONS (3)
  - Pyrexia [Recovered/Resolved]
  - Pyrexia [Recovered/Resolved]
  - Febrile convulsion [Recovered/Resolved]

NARRATIVE: CASE EVENT DATE: 20180807
